FAERS Safety Report 5139800-1 (Version None)
Quarter: 2006Q4

REPORT INFORMATION
  Report Type: 
  Country: None (occurrence: None)
  Receive Date: 20061025
  Receipt Date: 20061010
  Transmission Date: 20070319
  Serious: Yes (Other)
  Sender: FDA-Public Use
  Company Number: US-CVT-062052

PATIENT
  Age: 80 Year
  Sex: Female

DRUGS (14)
  1. RANEXA [Suspect]
     Indication: ANGINA PECTORIS
     Dosage: 500 MG, BID, ORAL
     Route: 048
     Dates: start: 20060908
  2. NOVOLOG [Concomitant]
  3. PRAVACHOL [Concomitant]
  4. COZAAR [Concomitant]
  5. ARICEPT [Concomitant]
  6. NAMENDA [Concomitant]
  7. SYNTHROID [Concomitant]
  8. COREG [Concomitant]
  9. SANCTURA (TROSPIUM) [Concomitant]
  10. POTASSIUM CHLORIDE [Concomitant]
  11. LASIX (FUROSEDMIDE) [Concomitant]
  12. ASPIRIN [Concomitant]
  13. PLAVIX [Concomitant]
  14. WELCHOL [Concomitant]

REACTIONS (3)
  - DIZZINESS [None]
  - FALL [None]
  - HYPOGLYCAEMIA [None]
